FAERS Safety Report 5364602-0 (Version None)
Quarter: 2007Q2

REPORT INFORMATION
  Report Type: 
  Country: None (occurrence: None)
  Receive Date: 20070530
  Receipt Date: 20070121
  Transmission Date: 20071010
  Serious: No
  Sender: FDA-Public Use
  Company Number: 2007PV028742

PATIENT
  Age: 60 Year
  Sex: Female
  Weight: 111.1313 kg

DRUGS (8)
  1. BYETTA [Suspect]
     Indication: DIABETES MELLITUS NON-INSULIN-DEPENDENT
     Dosage: 10 MCG;BID;SC; 5 MCG;BID;SC, 10 MCG;BID;SC; 5 MCG;BID;SC; 5 MCG;BID;SC; 5 MCG;BID;SC
     Route: 058
     Dates: start: 20050101, end: 20061101
  2. BYETTA [Suspect]
     Indication: DIABETES MELLITUS NON-INSULIN-DEPENDENT
     Dosage: 10 MCG;BID;SC; 5 MCG;BID;SC, 10 MCG;BID;SC; 5 MCG;BID;SC; 5 MCG;BID;SC; 5 MCG;BID;SC
     Route: 058
     Dates: start: 20060101, end: 20061127
  3. BYETTA [Suspect]
     Indication: DIABETES MELLITUS NON-INSULIN-DEPENDENT
     Dosage: 10 MCG;BID;SC; 5 MCG;BID;SC, 10 MCG;BID;SC; 5 MCG;BID;SC; 5 MCG;BID;SC; 5 MCG;BID;SC
     Route: 058
     Dates: start: 20061128, end: 20061128
  4. BYETTA [Suspect]
     Indication: DIABETES MELLITUS NON-INSULIN-DEPENDENT
     Dosage: 10 MCG;BID;SC; 5 MCG;BID;SC, 10 MCG;BID;SC; 5 MCG;BID;SC; 5 MCG;BID;SC; 5 MCG;BID;SC
     Route: 058
     Dates: start: 20061129, end: 20070115
  5. BYETTA [Suspect]
     Indication: DIABETES MELLITUS NON-INSULIN-DEPENDENT
     Dosage: 10 MCG;BID;SC; 5 MCG;BID;SC, 10 MCG;BID;SC; 5 MCG;BID;SC; 5 MCG;BID;SC; 5 MCG;BID;SC
     Route: 058
     Dates: start: 20070116
  6. GLUCOTROL XL [Concomitant]
  7. AVANDIA [Concomitant]
  8. METFORMIN HCL [Concomitant]

REACTIONS (8)
  - BLOOD GLUCOSE DECREASED [None]
  - FATIGUE [None]
  - FEELING COLD [None]
  - INSOMNIA [None]
  - MALAISE [None]
  - MENTAL IMPAIRMENT [None]
  - VISUAL ACUITY REDUCED [None]
  - WEIGHT DECREASED [None]
